FAERS Safety Report 7088251-1 (Version None)
Quarter: 2010Q4

REPORT INFORMATION
  Report Type: 
  Country: None (occurrence: None)
  Receive Date: 20101108
  Receipt Date: 20100701
  Transmission Date: 20110411
  Serious: Yes (Hospitalization)
  Sender: FDA-Public Use
  Company Number: US-BAYER-201023110NA

PATIENT
  Age: 34 Year
  Sex: Female
  Weight: 76 kg

DRUGS (3)
  1. YAZ [Suspect]
     Indication: OVARIAN CYST
     Dates: start: 20090401, end: 20090505
  2. ADVIL PM [Concomitant]
  3. DIET ASIA PILLS [Concomitant]
     Dosage: 2 DAYS PRIOR TO HOSPITALIZATION

REACTIONS (4)
  - DEEP VEIN THROMBOSIS [None]
  - DYSPNOEA [None]
  - HEART RATE INCREASED [None]
  - PULMONARY EMBOLISM [None]
